FAERS Safety Report 13546791 (Version 1)
Quarter: 2017Q2

REPORT INFORMATION
  Report Type: Report from Study
  Country: US (occurrence: US)
  Receive Date: 20170515
  Receipt Date: 20170515
  Transmission Date: 20170830
  Serious: Yes (Hospitalization)
  Sender: FDA-Public Use
  Company Number: US-BIOGEN-2017BI00400305

PATIENT
  Age: 60 Year
  Sex: Female

DRUGS (1)
  1. TYSABRI [Suspect]
     Active Substance: NATALIZUMAB
     Indication: MULTIPLE SCLEROSIS
     Dosage: INFUSED OVER 1 HOUR
     Route: 042
     Dates: start: 20101004

REACTIONS (6)
  - Femur fracture [Recovered/Resolved]
  - Asthenia [Unknown]
  - Hip fracture [Recovered/Resolved]
  - Cerebrovascular accident [Recovered/Resolved with Sequelae]
  - Fall [Recovered/Resolved]
  - Amnesia [Not Recovered/Not Resolved]

NARRATIVE: CASE EVENT DATE: 201702
